FAERS Safety Report 4572706-5 (Version None)
Quarter: 2005Q1

REPORT INFORMATION
  Report Type: 
  Country: None (occurrence: None)
  Receive Date: 20050208
  Receipt Date: 20041207
  Transmission Date: 20050727
  Serious: No
  Sender: FDA-Public Use
  Company Number: US-GLAXOSMITHKLINE-A0536583A

PATIENT
  Age: 48 Year
  Sex: Female

DRUGS (6)
  1. PAXIL CR [Suspect]
     Dosage: 25MG PER DAY
     Route: 048
  2. LEVOXYL [Concomitant]
  3. HYDROCHLOROTHIAZIDE [Concomitant]
  4. ZESTRIL [Concomitant]
  5. NEXIUM [Concomitant]
  6. LIPITOR [Concomitant]

REACTIONS (4)
  - AGITATION [None]
  - DIZZINESS [None]
  - OLIGOMENORRHOEA [None]
  - PARAESTHESIA [None]
